FAERS Safety Report 5907240-0 (Version None)
Quarter: 2008Q4

REPORT INFORMATION
  Report Type: 
  Country: None (occurrence: None)
  Receive Date: 20081003
  Receipt Date: 20080925
  Transmission Date: 20090506
  Serious: Yes (Hospitalization, Other)
  Sender: FDA-Public Use
  Company Number: PHHY2008JP17782

PATIENT
  Sex: Male

DRUGS (12)
  1. VOLTAREN [Suspect]
     Indication: INTERVERTEBRAL DISC PROTRUSION
     Dosage: 25 MG, TID
     Route: 048
     Dates: start: 20080724, end: 20080920
  2. VOLTAREN [Suspect]
     Indication: PERIARTHRITIS
  3. NEUROTROPIN [Concomitant]
     Dosage: 3 DF
     Route: 048
     Dates: start: 20080724
  4. NEUROTROPIN [Concomitant]
     Dosage: 4 DF
     Route: 048
     Dates: end: 20080920
  5. MUCOSTA [Concomitant]
     Dosage: 300 MG
     Route: 048
     Dates: start: 20080724
  6. MUCOSTA [Concomitant]
     Dosage: 300 MG
     Route: 048
     Dates: end: 20080920
  7. KETOPROFEN [Concomitant]
     Dosage: UNK
     Dates: start: 20080724, end: 20080920
  8. LOXONIN [Concomitant]
     Dosage: 180 MG/DAY
     Route: 048
     Dates: start: 20080801, end: 20080920
  9. LOXONIN [Concomitant]
     Dosage: UNK
     Route: 061
     Dates: start: 20080801
  10. CYANOCOBALAMIN [Concomitant]
     Dosage: 1 MG/DAY
     Route: 048
     Dates: start: 20080801, end: 20080920
  11. BETAMETHASONE [Concomitant]
     Dosage: 2 MG/DAY
     Dates: start: 20080801, end: 20080801
  12. XYLOCAIN [Concomitant]
     Dosage: 1 ML
     Dates: start: 20080801, end: 20080801

REACTIONS (14)
  - ALANINE AMINOTRANSFERASE INCREASED [None]
  - ASPARTATE AMINOTRANSFERASE INCREASED [None]
  - BENIGN SOFT TISSUE NEOPLASM [None]
  - BLOOD ALBUMIN DECREASED [None]
  - BLOOD CREATINE PHOSPHOKINASE INCREASED [None]
  - BLOOD LACTATE DEHYDROGENASE INCREASED [None]
  - BLOOD TRIGLYCERIDES INCREASED [None]
  - C-REACTIVE PROTEIN INCREASED [None]
  - ECZEMA [None]
  - GENERALISED OEDEMA [None]
  - INTERVERTEBRAL DISC PROTRUSION [None]
  - PERIARTHRITIS [None]
  - PROTEIN TOTAL DECREASED [None]
  - WEIGHT INCREASED [None]
